FAERS Safety Report 26122014 (Version 1)
Quarter: 2025Q4

REPORT INFORMATION
  Report Type: Spontaneous
  Country: CA (occurrence: CA)
  Receive Date: 20251204
  Receipt Date: 20251204
  Transmission Date: 20260119
  Serious: Yes (Other)
  Sender: PFIZER
  Company Number: CA-PFIZER INC-202500215727

PATIENT
  Age: 82 Year
  Sex: Male

DRUGS (1)
  1. VYNDAMAX [Suspect]
     Active Substance: TAFAMIDIS
     Indication: Acquired ATTR amyloidosis
     Dosage: 61 MG, 1X/DAY
     Route: 048
     Dates: start: 20250921

REACTIONS (9)
  - Mobility decreased [Recovering/Resolving]
  - Fall [Unknown]
  - Fatigue [Recovering/Resolving]
  - Nausea [Unknown]
  - Headache [Recovering/Resolving]
  - Somnolence [Unknown]
  - Muscular weakness [Unknown]
  - Abdominal discomfort [Recovering/Resolving]
  - Loss of personal independence in daily activities [Unknown]

NARRATIVE: CASE EVENT DATE: 20250101
